FAERS Safety Report 7479524-9 (Version None)
Quarter: 2011Q2

REPORT INFORMATION
  Report Type: 
  Country: None (occurrence: None)
  Receive Date: 20110513
  Receipt Date: 20110503
  Transmission Date: 20111010
  Serious: Yes (Hospitalization)
  Sender: FDA-Public Use
  Company Number: PHHY2011FI37685

PATIENT
  Sex: Female

DRUGS (1)
  1. ZOMETA [Suspect]
     Indication: NEOPLASM MALIGNANT
     Dosage: 4 MG, UNK
     Dates: start: 20110418

REACTIONS (7)
  - GENERAL PHYSICAL HEALTH DETERIORATION [None]
  - CHILLS [None]
  - ARTHRALGIA [None]
  - LEUKOCYTOSIS [None]
  - RELAPSING FEVER [None]
  - C-REACTIVE PROTEIN INCREASED [None]
  - BONE PAIN [None]
